FAERS Safety Report 14565884 (Version 1)
Quarter: 2018Q1

REPORT INFORMATION
  Report Type: Spontaneous
  Country: US (occurrence: US)
  Receive Date: 20180223
  Receipt Date: 20180223
  Transmission Date: 20180509
  Serious: No
  Sender: FDA-Public Use
  Company Number: PHEH2018US007004

PATIENT
  Sex: Male
  Weight: 102.4 kg

DRUGS (2)
  1. COSENTYX [Suspect]
     Active Substance: SECUKINUMAB
     Indication: PSORIASIS
     Dosage: 300 MG, QW (LOADING DOSE 5 WEEKS)
     Route: 065
  2. COSENTYX [Suspect]
     Active Substance: SECUKINUMAB
     Dosage: 300 MG, QMO(2ND ONCE A MONTH DOSE)
     Route: 065

REACTIONS (5)
  - Joint swelling [Unknown]
  - Erythema [Unknown]
  - Drug effect incomplete [Unknown]
  - Skin exfoliation [Unknown]
  - Skin lesion [Unknown]
